FAERS Safety Report 16384730 (Version 1)
Quarter: 2019Q2

REPORT INFORMATION
  Report Type: Spontaneous
  Country: FR (occurrence: FR)
  Receive Date: 20190603
  Receipt Date: 20190603
  Transmission Date: 20190711
  Serious: Yes (Life-Threatening)
  Sender: FDA-Public Use
  Company Number: FR-TEVA-2019-FR-1057272

PATIENT
  Age: 71 Year
  Sex: Female
  Weight: 81 kg

DRUGS (5)
  1. MONOCRIXO [Suspect]
     Active Substance: TRAMADOL HYDROCHLORIDE
     Indication: PAIN
     Dosage: 1 DF PER DAY
     Route: 048
     Dates: end: 20190326
  2. WYSTAMM 10 MG, COMPRIM? [Suspect]
     Active Substance: RUPATADINE FUMARATE
     Indication: PRODUCT USED FOR UNKNOWN INDICATION
     Dosage: 1 DF PER DAY
     Route: 048
     Dates: end: 20190326
  3. ELIQUIS [Suspect]
     Active Substance: APIXABAN
     Indication: ATRIAL FIBRILLATION
     Route: 048
     Dates: end: 20190326
  4. LEVOTHYROX [Concomitant]
     Active Substance: LEVOTHYROXINE
  5. AMIODARONE [Suspect]
     Active Substance: AMIODARONE
     Indication: ATRIAL FIBRILLATION
     Dosage: 200MG PER DAY
     Route: 048

REACTIONS (2)
  - Subcutaneous haematoma [Recovering/Resolving]
  - Mediastinal haematoma [Recovering/Resolving]

NARRATIVE: CASE EVENT DATE: 20190325
